FAERS Safety Report 11875567 (Version 1)
Quarter: 2015Q4

REPORT INFORMATION
  Report Type: Spontaneous
  Country: GB (occurrence: GB)
  Receive Date: 20151229
  Receipt Date: 20151229
  Transmission Date: 20160305
  Serious: Yes (Death, Hospitalization, Other)
  Sender: FDA-Public Use
  Company Number: GB-BRISTOL-MYERS SQUIBB COMPANY-12054680

PATIENT
  Age: 30 Year
  Sex: Female
  Weight: 66 kg

DRUGS (4)
  1. DIDANOSINE. [Suspect]
     Active Substance: DIDANOSINE
     Indication: HIV INFECTION
     Dosage: 400 MG, QD
     Route: 048
     Dates: start: 20011009, end: 20020826
  2. STAVUDINE. [Suspect]
     Active Substance: STAVUDINE
     Indication: RETROVIRAL INFECTION
     Dosage: 80 MG, QD
     Route: 048
     Dates: start: 20011009, end: 20020826
  3. SAQUINAVIR [Suspect]
     Active Substance: SAQUINAVIR
     Indication: RETROVIRAL INFECTION
     Dosage: 1000 MG, QD
     Route: 048
     Dates: start: 20020228, end: 20020826
  4. RITONAVIR. [Suspect]
     Active Substance: RITONAVIR
     Indication: RETROVIRAL INFECTION
     Dosage: 100 MG, QD
     Route: 048
     Dates: start: 20020228, end: 20020826

REACTIONS (5)
  - Lactic acidosis [Fatal]
  - Pregnancy [Recovered/Resolved]
  - Premature delivery [Unknown]
  - Multi-organ failure [Fatal]
  - HIV infection [Fatal]

NARRATIVE: CASE EVENT DATE: 200208
